FAERS Safety Report 5646625-7 (Version None)
Quarter: 2008Q1

REPORT INFORMATION
  Report Type: 
  Country: None (occurrence: None)
  Receive Date: 20080303
  Receipt Date: 20080220
  Transmission Date: 20080703
  Serious: Yes (Other)
  Sender: FDA-Public Use
  Company Number: PHMT2008CA00523

PATIENT
  Age: 37 Year
  Sex: Female

DRUGS (2)
  1. SYNTHROID [Concomitant]
     Dosage: 0.05 MG
  2. DIOVAN HCT [Suspect]
     Indication: HYPERTENSION
     Dosage: 160/25 MG, ONE TABLET QD
     Route: 048
     Dates: start: 20050310

REACTIONS (1)
  - SURGERY [None]
